FAERS Safety Report 9000655 (Version 1)
Quarter: 2012Q4

REPORT INFORMATION
  Report Type: Spontaneous
  Country: DE (occurrence: None)
  Receive Date: 20121226
  Receipt Date: 20121226
  Transmission Date: 20130627
  Serious: Yes (Hospitalization)
  Sender: FDA-Public Use
  Company Number: ACO_33349_2012

PATIENT
  Age: 49 Year
  Sex: Female
  Weight: 62 kg

DRUGS (5)
  1. FAMPRIDINE-SR (FAMPRIDINE) TABLET [Suspect]
     Indication: MULTIPLE SCLEROSIS
     Route: 048
     Dates: start: 20120711
  2. COPAXONE (GLATIRAMER ACETATE ) [Concomitant]
  3. ASCOTOP (ZOLMITRIPTAN) [Concomitant]
  4. ARIMIDEX (ANASTROZOLE) [Concomitant]
  5. MICTONORM UNO (PROPIVERINE HYDROCHLORIDE) [Concomitant]

REACTIONS (2)
  - Upper limb fracture [None]
  - Road traffic accident [None]
